FAERS Safety Report 24591036 (Version 1)
Quarter: 2024Q4

REPORT INFORMATION
  Report Type: Spontaneous
  Country: US (occurrence: US)
  Receive Date: 20241107
  Receipt Date: 20241107
  Transmission Date: 20250115
  Serious: Yes (Hospitalization, Disabling, Other)
  Sender: EMCURE PHARMACEUTICALS LTD
  Company Number: US-AVET LIFESCIENCES LTD-2024-AVET-000387

PATIENT
  Age: 31 Year
  Sex: Female

DRUGS (4)
  1. TACROLIMUS [Suspect]
     Active Substance: TACROLIMUS
     Indication: Prophylaxis against graft versus host disease
     Dosage: UNK
     Route: 065
  2. TACROLIMUS [Suspect]
     Active Substance: TACROLIMUS
     Indication: Graft versus host disease in lung
  3. RITUXAN [Suspect]
     Active Substance: RITUXIMAB
     Indication: Graft versus host disease in lung
     Dosage: 375 MG/M2 OF WEEKLY RITUXAN FOR 4 WEEKS
     Route: 065
     Dates: start: 202005, end: 20210303
  4. METHOTREXATE [Suspect]
     Active Substance: METHOTREXATE
     Indication: Prophylaxis against graft versus host disease
     Dosage: UNK
     Route: 065

REACTIONS (7)
  - Capnocytophaga infection [Recovered/Resolved with Sequelae]
  - Purpura fulminans [Recovered/Resolved with Sequelae]
  - Septic shock [Recovered/Resolved]
  - Cardiogenic shock [Recovered/Resolved]
  - Graft versus host disease in lung [Recovered/Resolved]
  - Graft versus host disease in skin [Recovered/Resolved]
  - Off label use [Unknown]
